FAERS Safety Report 9944344 (Version 1)
Quarter: 2014Q1

REPORT INFORMATION
  Report Type: Report from Study
  Country: US (occurrence: US)
  Receive Date: 20140303
  Receipt Date: 20140303
  Transmission Date: 20141002
  Serious: No
  Sender: FDA-Public Use
  Company Number: US-ABBVIE-13P-163-1050278-00

PATIENT
  Age: 20 Year
  Sex: Female

DRUGS (7)
  1. HUMIRA [Suspect]
     Indication: CROHN^S DISEASE
     Dosage: LOADING DOSE
     Dates: start: 20130203
  2. LEXAPRO [Concomitant]
     Indication: DEPRESSION
     Dosage: 20 MG DAILY
  3. LEXAPRO [Concomitant]
     Indication: ANXIETY
  4. XANAX [Concomitant]
     Indication: ANXIETY
     Dosage: 0.25 MG DAILY
  5. AMITRIPTYLINE [Concomitant]
     Indication: PAIN
     Dosage: 30 MG DAILY AT BEDTIME
  6. ZANTAC [Concomitant]
     Indication: CROHN^S DISEASE
     Dosage: 150 MG DAILY
  7. ORTHO-TRI-CYCLEN 21 [Concomitant]
     Indication: PRODUCT USED FOR UNKNOWN INDICATION
     Dosage: DAILY

REACTIONS (5)
  - Injection site reaction [Not Recovered/Not Resolved]
  - Injection site erythema [Not Recovered/Not Resolved]
  - Injection site warmth [Not Recovered/Not Resolved]
  - Injection site pruritus [Not Recovered/Not Resolved]
  - Papule [Not Recovered/Not Resolved]
